FAERS Safety Report 10155506 (Version 1)
Quarter: 2014Q2

REPORT INFORMATION
  Report Type: Spontaneous
  Country: US (occurrence: US)
  Receive Date: 20140506
  Receipt Date: 20140506
  Transmission Date: 20141212
  Serious: No
  Sender: FDA-Public Use
  Company Number: US-PFIZER INC-2014124651

PATIENT
  Age: 35 Year
  Sex: Female
  Weight: 50.34 kg

DRUGS (2)
  1. CHANTIX [Suspect]
     Indication: SMOKING CESSATION THERAPY
     Dosage: 0.5 MG, 1X/DAY
     Route: 048
     Dates: start: 20140501, end: 20140503
  2. CHANTIX [Suspect]
     Dosage: 0.5 MG, 2X/DAY
     Route: 048
     Dates: start: 20140504

REACTIONS (4)
  - Breast pain [Not Recovered/Not Resolved]
  - Cough [Unknown]
  - Breast tenderness [Unknown]
  - Hyperaesthesia [Unknown]
